FAERS Safety Report 8449784-6 (Version None)
Quarter: 2012Q2

REPORT INFORMATION
  Report Type: 
  Country: None (occurrence: None)
  Receive Date: 20120614
  Receipt Date: 20120614
  Transmission Date: 20120825
  Serious: Yes (Hospitalization)
  Sender: FDA-Public Use
  Company Number: None

PATIENT
  Age: 63 Year
  Sex: Male

DRUGS (2)
  1. PEGASYS [Suspect]
     Dosage: 180 MCG WEEKLY SQ
     Route: 058
     Dates: start: 20120425
  2. RIBAVIRIN [Suspect]
     Dosage: 600MG BID PO
     Route: 048
     Dates: start: 20120425

REACTIONS (1)
  - ANAEMIA [None]
